FAERS Safety Report 8024152-X (Version None)
Quarter: 2012Q1

REPORT INFORMATION
  Report Type: 
  Country: None (occurrence: None)
  Receive Date: 20120103
  Receipt Date: 20111223
  Transmission Date: 20120608
  Serious: Yes (Death)
  Sender: FDA-Public Use
  Company Number: ADR-2011-11288

PATIENT
  Age: 53 Year
  Sex: Female

DRUGS (5)
  1. BUPIVICAINE [Concomitant]
  2. DILAUDID [Concomitant]
  3. LIORESAL INTRATHECAL(BACLOFEN INJECTION) 1,250.0 MCG [Suspect]
     Indication: MUSCLE SPASTICITY
     Dosage: 1,209.4 MCG, DAILY, INT
     Route: 037
  4. CLONIDINE [Concomitant]
  5. KETAMINE HCL [Concomitant]

REACTIONS (1)
  - BREAST CANCER [None]
